FAERS Safety Report 18463130 (Version 1)
Quarter: 2020Q4

REPORT INFORMATION
  Report Type: Spontaneous
  Country: CN (occurrence: CN)
  Receive Date: 20201104
  Receipt Date: 20201104
  Transmission Date: 20210114
  Serious: Yes (Disabling, Other)
  Sender: FDA-Public Use
  Company Number: CN-PFIZER INC-2020423799

PATIENT
  Age: 73 Year
  Sex: Male
  Weight: 62 kg

DRUGS (6)
  1. SODIUM CHLORIDE. [Concomitant]
     Active Substance: SODIUM CHLORIDE
     Dosage: 20 G, 1X/DAY (QD)
     Route: 042
  2. TELMISARTAN. [Concomitant]
     Active Substance: TELMISARTAN
     Indication: HYPERTENSION
     Dosage: 40 MG, 1X/DAY
     Route: 048
     Dates: start: 20201007, end: 20201020
  3. TAMSULOSIN HYDROCHLORIDE. [Concomitant]
     Active Substance: TAMSULOSIN HYDROCHLORIDE
     Indication: URETHRAL DISORDER
     Dosage: 0.2 MG, DAILY (QN)
     Route: 048
  4. LIPITOR [Suspect]
     Active Substance: ATORVASTATIN CALCIUM
     Indication: PLAQUE SHIFT
     Dosage: 20 MG, 1X/DAY
     Route: 048
     Dates: start: 20201007, end: 20201009
  5. GINKGO LEAF EXTRACT AND DIPYRIDAMOLE [Concomitant]
     Indication: CEREBROVASCULAR DISORDER
     Dosage: UNK
     Route: 042
  6. PIRACETAM [Concomitant]
     Active Substance: PIRACETAM
     Indication: CEREBROVASCULAR DISORDER
     Dosage: 20 G, 1X/DAY
     Route: 041
     Dates: start: 20201007, end: 20201021

REACTIONS (3)
  - Hepatic function abnormal [Recovered/Resolved]
  - Cholecystitis chronic [Unknown]
  - Cholestasis [Unknown]

NARRATIVE: CASE EVENT DATE: 202010
